FAERS Safety Report 6975648-0 (Version None)
Quarter: 2010Q3

REPORT INFORMATION
  Report Type: 
  Country: None (occurrence: None)
  Receive Date: 20100910
  Receipt Date: 20100902
  Transmission Date: 20110219
  Serious: Yes (Hospitalization, Other)
  Sender: FDA-Public Use
  Company Number: PHHO2010FR11305

PATIENT
  Sex: Male
  Weight: 58 kg

DRUGS (13)
  1. NEORAL [Suspect]
     Indication: HEART TRANSPLANT
     Dosage: 160MG/DAY
     Route: 048
     Dates: start: 20091229, end: 20100601
  2. NEORAL [Suspect]
     Dosage: 75 MG, BID
     Route: 048
     Dates: start: 20100601
  3. MYCOPHENOLATE MOFETIL [Suspect]
     Indication: HEART TRANSPLANT
     Dosage: 1 G, BID
     Route: 048
     Dates: start: 20091229, end: 20100601
  4. MYCOPHENOLATE MOFETIL [Suspect]
     Dosage: 750 MG, BID
     Route: 048
     Dates: start: 20100601
  5. MAGNE B6 [Concomitant]
  6. CORTANCYL [Concomitant]
  7. ESOMEPRAZOLE MAGNESIUM [Concomitant]
  8. REVATIO [Concomitant]
  9. STILNOX [Concomitant]
  10. IRBESARTAN [Concomitant]
  11. FORADIL [Concomitant]
  12. SPIRIVA [Concomitant]
  13. BROMAZEPAM [Concomitant]

REACTIONS (27)
  - AMYOTROPHY [None]
  - ANAEMIA MACROCYTIC [None]
  - BILIARY DILATATION [None]
  - BLOOD ALKALINE PHOSPHATASE INCREASED [None]
  - CARDIAC FAILURE [None]
  - CHEST PAIN [None]
  - CHOLANGITIS [None]
  - CHOLESTASIS [None]
  - EMPHYSEMA [None]
  - FEMORAL ARTERIAL STENOSIS [None]
  - HYPERAMYLASAEMIA [None]
  - HYPERLIPASAEMIA [None]
  - HYPERTHERMIA [None]
  - HYPONATRAEMIA [None]
  - INTERMITTENT CLAUDICATION [None]
  - MALNUTRITION [None]
  - MICROLITHIASIS [None]
  - OEDEMA PERIPHERAL [None]
  - PANCREATIC CARCINOMA [None]
  - PANCREATITIS ACUTE [None]
  - PANCREATITIS CHRONIC [None]
  - PULMONARY ARTERIAL HYPERTENSION [None]
  - PYREXIA [None]
  - RENAL FAILURE ACUTE [None]
  - RENAL TUBULAR NECROSIS [None]
  - RIGHT VENTRICULAR DYSFUNCTION [None]
  - SEPSIS [None]
